FAERS Safety Report 23942766 (Version 2)
Quarter: 2024Q3

REPORT INFORMATION
  Report Type: Spontaneous
  Country: JP (occurrence: JP)
  Receive Date: 20240605
  Receipt Date: 20240722
  Transmission Date: 20241017
  Serious: Yes (Other)
  Sender: MERCK
  Company Number: JP-MSD-M2024-21024

PATIENT
  Age: 70 Year
  Sex: Female

DRUGS (1)
  1. KEYTRUDA [Suspect]
     Active Substance: PEMBROLIZUMAB
     Indication: Oesophageal carcinoma
     Dosage: 200 MILLIGRAM, Q3W
     Route: 041
     Dates: start: 202402

REACTIONS (1)
  - Pneumonia aspiration [Recovered/Resolved]

NARRATIVE: CASE EVENT DATE: 20240401
